FAERS Safety Report 10257145 (Version 4)
Quarter: 2014Q3

REPORT INFORMATION
  Report Type: Spontaneous
  Country: JP (occurrence: JP)
  Receive Date: 20140625
  Receipt Date: 20140724
  Transmission Date: 20150326
  Serious: Yes (Hospitalization, Other)
  Sender: FDA-Public Use
  Company Number: JP-009507513-1406JPN011229

PATIENT
  Age: 65 Year
  Sex: Female
  Weight: 65 kg

DRUGS (9)
  1. CRAVIT [Suspect]
     Active Substance: LEVOFLOXACIN
     Indication: PYREXIA
     Dosage: 500 MG, QD
     Route: 048
     Dates: start: 20130921, end: 20130923
  2. ALEVIATIN [Concomitant]
     Active Substance: PHENYTOIN SODIUM
     Dosage: 100 MG, BID
     Route: 048
     Dates: start: 20130830
  3. TAKEPRON [Concomitant]
     Active Substance: LANSOPRAZOLE
     Dosage: 15 MG, QD
     Route: 048
  4. MEROPEN [Concomitant]
     Active Substance: MEROPENEM
     Dosage: 0.5 G, TID
     Route: 041
     Dates: start: 20130930, end: 20131003
  5. TEMODAL [Suspect]
     Active Substance: TEMOZOLOMIDE
     Indication: GLIOMA
     Dosage: 100 MG, QD
     Route: 048
     Dates: start: 20130912, end: 20130928
  6. ROCEPHIN [Suspect]
     Active Substance: CEFTRIAXONE SODIUM
     Indication: PYREXIA
     Dosage: 1 G, BID
     Route: 041
     Dates: start: 20130924, end: 20130929
  7. EXCEGRAN [Concomitant]
     Active Substance: ZONISAMIDE
     Dosage: 200 MG, BID
     Route: 048
     Dates: start: 20130618
  8. KYTRIL [Suspect]
     Active Substance: GRANISETRON HYDROCHLORIDE
     Dosage: 1 MG, QD
     Route: 048
     Dates: start: 20130912, end: 20130928
  9. EXFORGE [Concomitant]
     Active Substance: AMLODIPINE BESYLATE\VALSARTAN
     Dosage: 1 DF, QD
     Route: 048
     Dates: end: 20131001

REACTIONS (4)
  - Tubulointerstitial nephritis [Recovered/Resolved]
  - Renal failure acute [Recovered/Resolved]
  - Haemodialysis [Recovered/Resolved]
  - Pyrexia [Recovered/Resolved]

NARRATIVE: CASE EVENT DATE: 20130921
